FAERS Safety Report 8586602-X (Version None)
Quarter: 2012Q3

REPORT INFORMATION
  Report Type: 
  Country: None (occurrence: None)
  Receive Date: 20120810
  Receipt Date: 20120807
  Transmission Date: 20120928
  Serious: Yes (Death, Congenital Anomaly, Other)
  Sender: FDA-Public Use
  Company Number: PHHY2012TR068240

PATIENT
  Sex: Female
  Weight: 0.4 kg

DRUGS (3)
  1. METRONIDAZOLE [Suspect]
     Dosage: MATERNAL DOSE:500 MG QD
     Route: 064
  2. HYDROCHLOROTHIAZIDE, SPIRONOLACTONE [Suspect]
     Dosage: 1 DF, MATERNAL DOSE
     Route: 064
  3. ORNIDAZOLE [Suspect]
     Dosage: MATERNAL DOSE: 500 MG BID
     Route: 064

REACTIONS (5)
  - LIMB REDUCTION DEFECT [None]
  - BRADYCARDIA FOETAL [None]
  - FOETAL EXPOSURE DURING PREGNANCY [None]
  - LIMB HYPOPLASIA CONGENITAL [None]
  - FOETAL ARRHYTHMIA [None]
